FAERS Safety Report 18194503 (Version 1)
Quarter: 2020Q3

REPORT INFORMATION
  Report Type: Spontaneous
  Country: US (occurrence: US)
  Receive Date: 20200825
  Receipt Date: 20200825
  Transmission Date: 20201103
  Serious: Yes (Other)
  Sender: FDA-Public Use
  Company Number: US-009507513-2008USA012238

PATIENT
  Age: 26 Year
  Sex: Female

DRUGS (1)
  1. NEXPLANON [Suspect]
     Active Substance: ETONOGESTREL
     Indication: CONTRACEPTION
     Dosage: 1 IMPLANT (68 MILLIGRAM), ONE TIME INSERTION
     Route: 015
     Dates: start: 20200413

REACTIONS (3)
  - Haemorrhagic disorder [Unknown]
  - Device kink [Unknown]
  - Product use issue [Unknown]

NARRATIVE: CASE EVENT DATE: 20200413
